FAERS Safety Report 14482184 (Version 3)
Quarter: 2018Q4

REPORT INFORMATION
  Report Type: Report from Study
  Country: US (occurrence: US)
  Receive Date: 20180202
  Receipt Date: 20181105
  Transmission Date: 20190204
  Serious: Yes (Hospitalization)
  Sender: FDA-Public Use
  Company Number: US-ACTELION-A-US2018-166793

PATIENT
  Age: 69 Year
  Sex: Female
  Weight: 51.9 kg

DRUGS (7)
  1. UPTRAVI [Suspect]
     Active Substance: SELEXIPAG
     Dosage: UNK
     Route: 048
     Dates: start: 20180117
  2. OPSUMIT [Suspect]
     Active Substance: MACITENTAN
     Indication: PULMONARY ARTERIAL HYPERTENSION
     Dosage: 10 MG, QD
     Route: 048
     Dates: start: 20160209
  3. ADEMPAS [Concomitant]
     Active Substance: RIOCIGUAT
     Indication: PULMONARY HYPERTENSION
     Dosage: UNK
     Dates: start: 20160209
  4. UPTRAVI [Suspect]
     Active Substance: SELEXIPAG
     Indication: PULMONARY ARTERIAL HYPERTENSION
     Dosage: UNK
     Route: 048
     Dates: start: 20170531
  5. ELIQUIS [Concomitant]
     Active Substance: APIXABAN
     Dosage: UNK
     Dates: start: 20150623
  6. TESSALON [Concomitant]
     Active Substance: BENZONATATE
     Dosage: UNK
     Dates: start: 20150623
  7. DUONEB [Concomitant]
     Active Substance: ALBUTEROL SULFATE\IPRATROPIUM BROMIDE
     Dosage: UNK
     Dates: start: 20161213

REACTIONS (17)
  - Disease progression [Unknown]
  - Pulmonary arterial pressure increased [Unknown]
  - Transplant evaluation [Unknown]
  - Glomerular filtration rate decreased [Unknown]
  - Anaemia [Unknown]
  - Blood urea increased [Unknown]
  - Paraesthesia [Unknown]
  - Right ventricular failure [Recovered/Resolved]
  - Hypoxia [Recovered/Resolved]
  - Right-to-left cardiac shunt [Unknown]
  - Chest discomfort [Unknown]
  - Dizziness [Unknown]
  - Atrial septal defect [Unknown]
  - Blood creatinine increased [Unknown]
  - Condition aggravated [Recovered/Resolved]
  - Hypotension [Unknown]
  - Presyncope [Unknown]

NARRATIVE: CASE EVENT DATE: 20180108
